FAERS Safety Report 10997343 (Version 1)
Quarter: 2015Q2

REPORT INFORMATION
  Report Type: Spontaneous
  Country: US (occurrence: US)
  Receive Date: 20150408
  Receipt Date: 20150408
  Transmission Date: 20150821
  Serious: No
  Sender: FDA-Public Use
  Company Number: US-BANPHARM-20142612

PATIENT
  Age: 84 Year
  Sex: Male
  Weight: 74.84 kg

DRUGS (6)
  1. ATACAND [Concomitant]
     Active Substance: CANDESARTAN CILEXETIL
  2. CRESTOR [Concomitant]
     Active Substance: ROSUVASTATIN CALCIUM
  3. COUMADIN [Concomitant]
     Active Substance: WARFARIN SODIUM
  4. ALEVE [Suspect]
     Active Substance: NAPROXEN SODIUM
     Indication: BACK PAIN
     Dosage: 1 DF, PRN,
     Route: 048
     Dates: start: 201404, end: 20140418
  5. BAYER LOW DOSE [Suspect]
     Active Substance: ASPIRIN
     Dosage: 81 MG,
  6. CADURA [Concomitant]

REACTIONS (2)
  - Blister rupture [Recovered/Resolved]
  - Blister [Recovered/Resolved]
